FAERS Safety Report 13049517 (Version 1)
Quarter: 2016Q4

REPORT INFORMATION
  Report Type: Report from Study
  Country: None (occurrence: NL)
  Receive Date: 20161221
  Receipt Date: 20161221
  Transmission Date: 20170207
  Serious: Yes (Other)
  Sender: FDA-Public Use
  Company Number: NL-ABBVIE-16P-114-1815747-00

PATIENT
  Sex: Female

DRUGS (1)
  1. DUODOPA [Suspect]
     Active Substance: CARBIDOPA\LEVODOPA
     Indication: PARKINSON^S DISEASE
     Dosage: MORNING DOSE: 8.0?? CONTINUOUS DOSE:? 4.4 ??   EXTRA DOSE: 2.0  ??NIGHT DOSE: 2.2
     Route: 050

REACTIONS (1)
  - General physical health deterioration [Not Recovered/Not Resolved]
